FAERS Safety Report 10445285 (Version 2)
Quarter: 2014Q3

REPORT INFORMATION
  Report Type: Report from Study
  Country: CA (occurrence: CA)
  Receive Date: 20140910
  Receipt Date: 20140927
  Transmission Date: 20150326
  Serious: Yes (Other)
  Sender: FDA-Public Use
  Company Number: CA-US-EMD SERONO, INC.-7319918

PATIENT
  Sex: Male

DRUGS (1)
  1. SAIZEN [Suspect]
     Active Substance: SOMATROPIN
     Indication: CYSTINOSIS
     Route: 058
     Dates: start: 20090121

REACTIONS (2)
  - Exophthalmos [Not Recovered/Not Resolved]
  - Off label use [Unknown]
